FAERS Safety Report 9718075 (Version 1)
Quarter: 2013Q4

REPORT INFORMATION
  Report Type: Spontaneous
  Country: US (occurrence: US)
  Receive Date: 20131127
  Receipt Date: 20131127
  Transmission Date: 20140711
  Serious: Yes (Hospitalization, Disabling, Other)
  Sender: FDA-Public Use
  Company Number: US-MERCK-1311USA010251

PATIENT
  Age: 70 Year
  Sex: Female

DRUGS (8)
  1. JANUVIA [Suspect]
     Indication: DIABETES MELLITUS
     Dosage: 100 MG, QD
     Route: 048
     Dates: start: 200711
  2. FUROSEMIDE [Concomitant]
     Route: 048
  3. TRAMADOL HYDROCHLORIDE [Concomitant]
  4. LACTULOSE [Concomitant]
  5. TOVIAZ [Concomitant]
  6. GLIPIZIDE [Concomitant]
  7. NADOLOL [Concomitant]
  8. CAPOTEN [Concomitant]

REACTIONS (9)
  - Abasia [Recovering/Resolving]
  - Pancreatitis [Recovering/Resolving]
  - Asthenia [Recovering/Resolving]
  - Headache [Recovering/Resolving]
  - Visual acuity reduced [Recovering/Resolving]
  - Oedema peripheral [Recovering/Resolving]
  - Blood iron decreased [Recovering/Resolving]
  - Hypotension [Recovering/Resolving]
  - Drug dose omission [Unknown]
